FAERS Safety Report 5397288-X (Version None)
Quarter: 2007Q3

REPORT INFORMATION
  Report Type: 
  Country: None (occurrence: None)
  Receive Date: 20070723
  Receipt Date: 20070712
  Transmission Date: 20080115
  Serious: Yes (Hospitalization)
  Sender: FDA-Public Use
  Company Number: SPV1-2007-03593

PATIENT
  Age: 10 Year
  Sex: Male

DRUGS (3)
  1. 426 (MIDODRINE) [Suspect]
     Indication: ORTHOSTATIC HYPOTENSION
     Dosage: 10 MG, 1X/DAY:DAY, ORAL
     Route: 048
  2. FLUDROCORTISONE ACETATE [Concomitant]
  3. METOPROLOL TARTRATE [Concomitant]

REACTIONS (7)
  - HEADACHE [None]
  - HEART RATE DECREASED [None]
  - NAUSEA [None]
  - ORTHOSTATIC HYPERTENSION [None]
  - PRURITUS [None]
  - RASH [None]
  - SYNCOPE [None]
